FAERS Safety Report 24771527 (Version 2)
Quarter: 2025Q3

REPORT INFORMATION
  Report Type: Spontaneous
  Country: US (occurrence: US)
  Receive Date: 20241224
  Receipt Date: 20250816
  Transmission Date: 20251020
  Serious: No
  Sender: ALEXION PHARMACEUTICALS
  Company Number: US-AstraZeneca-CH-00766591A

PATIENT
  Sex: Female

DRUGS (1)
  1. QUETIAPINE FUMARATE [Suspect]
     Active Substance: QUETIAPINE FUMARATE
     Route: 065
     Dates: start: 202405, end: 202408

REACTIONS (3)
  - Judgement impaired [Unknown]
  - Post-traumatic stress disorder [Unknown]
  - Emotional disorder [Unknown]

NARRATIVE: CASE EVENT DATE: 20240101
